FAERS Safety Report 6139384-5 (Version None)
Quarter: 2009Q2

REPORT INFORMATION
  Report Type: 
  Country: None (occurrence: None)
  Receive Date: 20090401
  Receipt Date: 20090327
  Transmission Date: 20091009
  Serious: Yes (Death)
  Sender: FDA-Public Use
  Company Number: US-ROCHE-624194

PATIENT
  Sex: Female
  Weight: 44.5 kg

DRUGS (2)
  1. CAPECITABINE [Suspect]
     Indication: COLORECTAL CANCER
     Route: 048
     Dates: start: 20081219, end: 20090201
  2. ARICEPT [Suspect]
     Route: 048

REACTIONS (1)
  - DEATH [None]
